FAERS Safety Report 8190431-9 (Version None)
Quarter: 2012Q1

REPORT INFORMATION
  Report Type: 
  Country: None (occurrence: None)
  Receive Date: 20120307
  Receipt Date: 20110914
  Transmission Date: 20120608
  Serious: Yes (Other)
  Sender: FDA-Public Use
  Company Number: HR-ABBOTT-11P-216-0855273-00

PATIENT
  Age: 57 Year
  Sex: Female

DRUGS (4)
  1. TRICOR [Suspect]
     Indication: HYPERLIPIDAEMIA
     Dates: start: 20090101, end: 20090101
  2. SIMVASTATIN [Interacting]
     Indication: HYPERLIPIDAEMIA
     Dates: start: 20090101, end: 20090101
  3. ANDOL [Concomitant]
     Indication: PRODUCT USED FOR UNKNOWN INDICATION
  4. ATENOLOL [Concomitant]
     Indication: PRODUCT USED FOR UNKNOWN INDICATION

REACTIONS (4)
  - DRUG INTERACTION [None]
  - MYOPATHY [None]
  - MYALGIA [None]
  - BLOOD CREATINE PHOSPHOKINASE INCREASED [None]
